FAERS Safety Report 5997363-2 (Version None)
Quarter: 2008Q4

REPORT INFORMATION
  Report Type: 
  Country: None (occurrence: None)
  Receive Date: 20081212
  Receipt Date: 20081202
  Transmission Date: 20090506
  Serious: Yes (Other)
  Sender: FDA-Public Use
  Company Number: GB-PFIZER INC-2008151199

PATIENT

DRUGS (6)
  1. SILDENAFIL CITRATE [Suspect]
     Indication: ERECTILE DYSFUNCTION
     Dosage: 50 MG, UNK
     Route: 048
     Dates: start: 20081105, end: 20081105
  2. ALLOPURINOL [Concomitant]
     Dosage: 300 MG, 1X/DAY
  3. AMLODIPINE BESILATE [Concomitant]
     Dosage: 5 MG, UNK
     Route: 048
  4. METFORMIN HCL [Concomitant]
     Dosage: 500 MG, UNK
     Route: 048
  5. RAMIPRIL [Concomitant]
     Dosage: 2.5 MG, UNK
     Route: 048
  6. SERTRALINE HCL [Concomitant]
     Dosage: 50 MG, UNK
     Route: 048

REACTIONS (3)
  - ASTHMA [None]
  - BRONCHOSPASM [None]
  - WHEEZING [None]
